FAERS Safety Report 13619974 (Version 1)
Quarter: 2017Q2

REPORT INFORMATION
  Report Type: Spontaneous
  Country: US (occurrence: US)
  Receive Date: 20170607
  Receipt Date: 20170607
  Transmission Date: 20170830
  Serious: Yes (Other)
  Sender: FDA-Public Use
  Company Number: None

PATIENT
  Age: 64 Year
  Sex: Female
  Weight: 51.03 kg

DRUGS (1)
  1. OLMESARTAN MEDOXOMIL 40MG [Suspect]
     Active Substance: OLMESARTAN MEDOXOMIL
     Indication: HYPERTENSION
     Route: 048
     Dates: start: 20170405, end: 20170406

REACTIONS (1)
  - Migraine [None]

NARRATIVE: CASE EVENT DATE: 20170405
